FAERS Safety Report 24133161 (Version 2)
Quarter: 2024Q3

REPORT INFORMATION
  Report Type: Spontaneous
  Country: GB (occurrence: None)
  Receive Date: 20240724
  Receipt Date: 20240818
  Transmission Date: 20241016
  Serious: Yes (Other)
  Sender: ASTRAZENECA
  Company Number: 2024A148362

PATIENT
  Age: 67 Year
  Sex: Female
  Weight: 90 kg

DRUGS (7)
  1. DAPAGLIFLOZIN [Suspect]
     Active Substance: DAPAGLIFLOZIN
     Indication: Diabetes mellitus
     Dosage: 10.0MG UNKNOWN
     Route: 048
     Dates: start: 20230217, end: 20240509
  2. ATORVASTATIN [Concomitant]
     Active Substance: ATORVASTATIN
  3. AMITRIPTYLINE [Concomitant]
     Active Substance: AMITRIPTYLINE
     Dosage: 20 MG ON20.0MG UNKNOWN
  4. AMLODIPINE [Concomitant]
     Active Substance: AMLODIPINE BESYLATE
     Dosage: 5 MG OD
  5. OMEPRAZOLE [Concomitant]
     Active Substance: OMEPRAZOLE
     Dosage: 20 MG OD
  6. QUETIAPINE [Concomitant]
     Active Substance: QUETIAPINE
     Dosage: 125 MG ON 125.0MG UNKNOWN
  7. RAMIPRIL [Concomitant]
     Active Substance: RAMIPRIL
     Dosage: 10 MG OD

REACTIONS (1)
  - Polycythaemia [Recovered/Resolved]
